APPROVED DRUG PRODUCT: CARISOPRODOL AND ASPIRIN
Active Ingredient: ASPIRIN; CARISOPRODOL
Strength: 325MG;200MG
Dosage Form/Route: TABLET;ORAL
Application: A040252 | Product #001
Applicant: OXFORD PHARMACEUTICALS LLC
Approved: Dec 10, 1997 | RLD: No | RS: No | Type: DISCN